FAERS Safety Report 24695821 (Version 2)
Quarter: 2024Q4

REPORT INFORMATION
  Report Type: Report from Study
  Country: CO (occurrence: CO)
  Receive Date: 20241204
  Receipt Date: 20241220
  Transmission Date: 20250114
  Serious: Yes (Hospitalization, Other)
  Sender: JOHNSON AND JOHNSON
  Company Number: CO-JNJFOC-20240933065

PATIENT
  Age: 66 Year
  Sex: Male
  Weight: 76 kg

DRUGS (1)
  1. SIMPONI [Suspect]
     Active Substance: GOLIMUMAB
     Indication: Rheumatoid arthritis
     Dosage: LAST DOSE ADMINISTERED ON: 28-NOV-2024
     Route: 058
     Dates: start: 20230605

REACTIONS (3)
  - Toe operation [Recovering/Resolving]
  - Urinary tract infection [Not Recovered/Not Resolved]
  - Biopsy kidney [Not Recovered/Not Resolved]

NARRATIVE: CASE EVENT DATE: 20240930
